FAERS Safety Report 6844456-3 (Version None)
Quarter: 2010Q2

REPORT INFORMATION
  Report Type: 
  Country: None (occurrence: None)
  Receive Date: 20100629
  Receipt Date: 20100517
  Transmission Date: 20101027
  Serious: No
  Sender: FDA-Public Use
  Company Number: US-WYE-H15192210

PATIENT
  Sex: Male

DRUGS (2)
  1. PRISTIQ [Suspect]
     Dates: start: 20090101
  2. NEXIUM [Concomitant]

REACTIONS (1)
  - MEDICATION RESIDUE [None]
